FAERS Safety Report 20092628 (Version 1)
Quarter: 2021Q4

REPORT INFORMATION
  Report Type: Report from Study
  Country: PH (occurrence: PH)
  Receive Date: 20211120
  Receipt Date: 20211120
  Transmission Date: 20220303
  Serious: Yes (Death)
  Sender: FDA-Public Use
  Company Number: PH-JNJFOC-20211128730

PATIENT

DRUGS (2)
  1. IMBRUVICA [Suspect]
     Active Substance: IBRUTINIB
     Indication: Lymphoma
     Route: 048
     Dates: start: 202108, end: 202109
  2. INSULIN NOS [Concomitant]
     Active Substance: INSULIN NOS
     Indication: Diabetes mellitus
     Route: 065

REACTIONS (7)
  - Death [Fatal]
  - Bedridden [Fatal]
  - Hyperchlorhydria [Fatal]
  - Hypokinesia [Fatal]
  - Mass [Fatal]
  - Chills [Fatal]
  - Asthenia [Fatal]
